FAERS Safety Report 16983408 (Version 1)
Quarter: 2019Q4

REPORT INFORMATION
  Report Type: Spontaneous
  Country: US (occurrence: US)
  Receive Date: 20191030
  Receipt Date: 20191030
  Transmission Date: 20200122
  Serious: Yes (Disabling)
  Sender: FDA-Public Use
  Company Number: None

PATIENT
  Age: 3 Year
  Sex: Male
  Weight: 11.25 kg

DRUGS (1)
  1. MIRALAX [Suspect]
     Active Substance: POLYETHYLENE GLYCOL 3350
     Indication: CONSTIPATION
     Dosage: ?          OTHER STRENGTH:17G;QUANTITY:1 CAP FILLED TO LINE;?
     Route: 048
     Dates: start: 20180301, end: 20190321

REACTIONS (3)
  - Constipation [None]
  - Aggression [None]
  - Therapy cessation [None]

NARRATIVE: CASE EVENT DATE: 20190321
